FAERS Safety Report 6506427-6 (Version None)
Quarter: 2009Q4

REPORT INFORMATION
  Report Type: 
  Country: None (occurrence: None)
  Receive Date: 20091221
  Receipt Date: 20091210
  Transmission Date: 20100525
  Serious: Yes (Other)
  Sender: FDA-Public Use
  Company Number: GB-RB-007222-08

PATIENT
  Age: 35 Year
  Sex: Female

DRUGS (3)
  1. SUBUTEX [Suspect]
     Indication: DRUG THERAPY
     Route: 065
  2. OLANZAPINE [Concomitant]
     Indication: DRUG USE FOR UNKNOWN INDICATION
     Dosage: UNKNOWN DOSING DETAILS
     Route: 065
  3. DIAZEPAM [Concomitant]
     Indication: DRUG USE FOR UNKNOWN INDICATION
     Dosage: UNKNOWN DOSING DETAILS
     Route: 065

REACTIONS (2)
  - DRUG EXPOSURE DURING PREGNANCY [None]
  - UTERINE RUPTURE [None]
